FAERS Safety Report 16173340 (Version 2)
Quarter: 2019Q2

REPORT INFORMATION
  Report Type: Spontaneous
  Country: US (occurrence: US)
  Receive Date: 20190409
  Receipt Date: 20190628
  Transmission Date: 20190711
  Serious: No
  Sender: FDA-Public Use
  Company Number: US-TEVA-2019-US-1025107

PATIENT
  Sex: Male

DRUGS (3)
  1. KETOROLAC TROMETHAMINE TABLET [Suspect]
     Active Substance: KETOROLAC TROMETHAMINE
     Indication: RENAL COLIC
     Route: 065
     Dates: start: 20190307
  2. KETOROLAC IM [Concomitant]
     Route: 030
     Dates: start: 20190307
  3. KETOROLAC IM [Concomitant]
     Route: 030
     Dates: start: 20190308

REACTIONS (1)
  - Drug ineffective [Unknown]

NARRATIVE: CASE EVENT DATE: 20190308
